APPROVED DRUG PRODUCT: FUROSEMIDE
Active Ingredient: FUROSEMIDE
Strength: 80MG
Dosage Form/Route: TABLET;ORAL
Application: N018569 | Product #005 | TE Code: AB
Applicant: EPIC PHARMA LLC
Approved: Aug 14, 1984 | RLD: No | RS: No | Type: RX